FAERS Safety Report 15994824 (Version 1)
Quarter: 2019Q1

REPORT INFORMATION
  Report Type: Spontaneous
  Country: CZ (occurrence: CZ)
  Receive Date: 20190222
  Receipt Date: 20190222
  Transmission Date: 20190418
  Serious: Yes (Life-Threatening, Other)
  Sender: FDA-Public Use
  Company Number: CZ-ACCORD-108468

PATIENT
  Age: 37 Year
  Sex: Female
  Weight: 57 kg

DRUGS (4)
  1. OXALIPLATIN ACCORD [Suspect]
     Active Substance: OXALIPLATIN
     Indication: RECTAL NEOPLASM
     Route: 042
     Dates: start: 20180214, end: 20180627
  2. RANITIDINE. [Concomitant]
     Active Substance: RANITIDINE
     Indication: PREMEDICATION
     Route: 042
     Dates: start: 20180627, end: 20180627
  3. DITHIADEN INJECTION [Concomitant]
     Indication: PREMEDICATION
     Route: 042
     Dates: start: 20180627, end: 20180627
  4. DEXAMED [Concomitant]
     Indication: PREMEDICATION
     Route: 042
     Dates: start: 20180214, end: 20180627

REACTIONS (8)
  - Nausea [Recovered/Resolved]
  - Skin discolouration [Recovered/Resolved]
  - Skin burning sensation [Recovered/Resolved]
  - Hypersensitivity [Recovered/Resolved]
  - Rash pruritic [Recovered/Resolved]
  - Hearing disability [Recovered/Resolved]
  - Tongue disorder [Recovered/Resolved]
  - Retching [Recovered/Resolved]

NARRATIVE: CASE EVENT DATE: 20180613
